FAERS Safety Report 9714739 (Version 1)
Quarter: 2013Q4

REPORT INFORMATION
  Report Type: Spontaneous
  Country: CA (occurrence: CA)
  Receive Date: 20131126
  Receipt Date: 20131126
  Transmission Date: 20140711
  Serious: Yes (Other)
  Sender: FDA-Public Use
  Company Number: CA-B.I. PHARMACEUTICALS,INC./RIDGEFIELD-2013-BI-38726CN

PATIENT
  Age: 68 Year
  Sex: Female
  Weight: 50 kg

DRUGS (8)
  1. PRADAX [Suspect]
     Dosage: 300 MG
     Route: 048
  2. PRADAX [Suspect]
     Dosage: 240 MG
     Route: 048
  3. PRADAX [Suspect]
     Dosage: 300 MG
     Route: 048
  4. APO-BISOPROLOL [Concomitant]
  5. DIGOXIN [Concomitant]
  6. FOLIC ACID [Concomitant]
  7. SYNTHROID [Concomitant]
  8. VITAMINS [Concomitant]

REACTIONS (7)
  - Urticaria [Not Recovered/Not Resolved]
  - Anaemia [Not Recovered/Not Resolved]
  - Dysphagia [Not Recovered/Not Resolved]
  - Hot flush [Not Recovered/Not Resolved]
  - Oesophageal pain [Not Recovered/Not Resolved]
  - Oesophageal spasm [Not Recovered/Not Resolved]
  - Dysphagia [Not Recovered/Not Resolved]
